FAERS Safety Report 25231720 (Version 1)
Quarter: 2025Q2

REPORT INFORMATION
  Report Type: Spontaneous
  Country: US (occurrence: US)
  Receive Date: 20250423
  Receipt Date: 20250423
  Transmission Date: 20250717
  Serious: No
  Sender: PFIZER
  Company Number: US-PFIZER INC-202500083979

PATIENT
  Age: 72 Year
  Sex: Female

DRUGS (8)
  1. XELJANZ XR [Suspect]
     Active Substance: TOFACITINIB CITRATE
     Indication: Rheumatoid arthritis
     Dosage: 11 MG, 1X/DAY
     Route: 048
     Dates: end: 2024
  2. METHOTREXATE [Concomitant]
     Active Substance: METHOTREXATE
  3. SPIRONOLACTONE [Concomitant]
     Active Substance: SPIRONOLACTONE
  4. FAMOTIDINE [Concomitant]
     Active Substance: FAMOTIDINE
  5. ASPIRIN [Concomitant]
     Active Substance: ASPIRIN
  6. FOLIC ACID [Concomitant]
     Active Substance: FOLIC ACID
  7. VITAMINS [Concomitant]
     Active Substance: VITAMINS
  8. COLACE [Concomitant]
     Active Substance: DOCUSATE SODIUM

REACTIONS (3)
  - Cough [Unknown]
  - Oesophageal disorder [Unknown]
  - Productive cough [Unknown]

NARRATIVE: CASE EVENT DATE: 20220101
